FAERS Safety Report 13447051 (Version 2)
Quarter: 2017Q2

REPORT INFORMATION
  Report Type: Spontaneous
  Country: US (occurrence: US)
  Receive Date: 20170417
  Receipt Date: 20170616
  Transmission Date: 20170830
  Serious: No
  Sender: FDA-Public Use
  Company Number: US-PFIZER INC-2017164662

PATIENT
  Age: 46 Year
  Sex: Female
  Weight: 122.4 kg

DRUGS (2)
  1. NEURONTIN [Suspect]
     Active Substance: GABAPENTIN
     Indication: NEUROPATHY PERIPHERAL
     Dosage: UNK
  2. GABAPENTIN. [Suspect]
     Active Substance: GABAPENTIN
     Dosage: UNK

REACTIONS (5)
  - Drug ineffective [Recovered/Resolved]
  - Hypertension [Unknown]
  - Visual impairment [Unknown]
  - Product use in unapproved indication [Unknown]
  - Fall [Unknown]
